FAERS Safety Report 18315981 (Version 2)
Quarter: 2021Q4

REPORT INFORMATION
  Report Type: Other
  Country: CA (occurrence: CA)
  Receive Date: 20200927
  Receipt Date: 20211130
  Transmission Date: 20220303
  Serious: Yes (Other)
  Sender: FDA-Public Use
  Company Number: CA-CELLTRION INC.-2020CA026958

PATIENT

DRUGS (32)
  1. RITUXIMAB [Suspect]
     Active Substance: RITUXIMAB
     Indication: Systemic lupus erythematosus
     Dosage: 500 MILLIGRAM
     Route: 042
  2. RITUXIMAB [Suspect]
     Active Substance: RITUXIMAB
     Indication: Pulmonary embolism
     Dosage: 1000 MILLIGRAM
     Route: 042
  3. RITUXIMAB [Suspect]
     Active Substance: RITUXIMAB
     Indication: Pneumonia
     Dosage: 885 MILLIGRAM, 1 EVERY 1 WEEKS
     Route: 042
  4. ACETAMINOPHEN [Concomitant]
     Active Substance: ACETAMINOPHEN
     Indication: Premedication
     Dosage: 650.0 MILLIGRAM
     Route: 048
  5. ALENDRONATE SODIUM [Concomitant]
     Active Substance: ALENDRONATE SODIUM
     Dosage: UNK
  6. AMLODIPINE [Concomitant]
     Active Substance: AMLODIPINE BESYLATE
     Route: 065
  7. ATIVAN [Concomitant]
     Active Substance: LORAZEPAM
  8. BENADRYL [Concomitant]
     Active Substance: DIPHENHYDRAMINE HYDROCHLORIDE
     Indication: Premedication
     Dosage: 50.0 MILLIGRAM
     Route: 048
  9. CALCIUM [Concomitant]
     Active Substance: CALCIUM
  10. CYCLOBENZAPRINE [Concomitant]
     Active Substance: CYCLOBENZAPRINE
  11. DIPHENHYDRAMINE [Concomitant]
     Active Substance: DIPHENHYDRAMINE
     Indication: Premedication
     Dosage: 50.0 MILLIGRAM
     Route: 048
  12. FUROSEMIDE [Concomitant]
     Active Substance: FUROSEMIDE
     Route: 065
  13. HUMALOG [Concomitant]
     Active Substance: INSULIN LISPRO
  14. FERROUS SULFATE ANHYDROUS [Concomitant]
     Active Substance: FERROUS SULFATE ANHYDROUS
  15. LANTUS [Concomitant]
     Active Substance: INSULIN GLARGINE
  16. LIRAGLUTIDE [Concomitant]
     Active Substance: LIRAGLUTIDE
  17. LOPERAMIDE [Concomitant]
     Active Substance: LOPERAMIDE
  18. MEPRON [Concomitant]
     Active Substance: ATOVAQUONE
  19. METHYLPREDNISOLONE [Concomitant]
     Active Substance: METHYLPREDNISOLONE
     Indication: Premedication
     Dosage: 100.0 MILLIGRAM
     Route: 048
  20. MORPHINE [Concomitant]
     Active Substance: MORPHINE
  21. MYCOPHENOLATE SODIUM [Concomitant]
     Active Substance: MYCOPHENOLATE SODIUM
  22. PANTOPRAZOLE [Concomitant]
     Active Substance: PANTOPRAZOLE
  23. PREDNISONE [Concomitant]
     Active Substance: PREDNISONE
     Dosage: UNK
  24. PREGABALIN [Concomitant]
     Active Substance: PREGABALIN
  25. PURIFIED PROTEIN DERIVATIVE OF TUBERCULIN [Concomitant]
  26. QUETIAPINE [Concomitant]
     Active Substance: QUETIAPINE
  27. ROSUVASTATIN [Concomitant]
     Active Substance: ROSUVASTATIN
     Route: 058
  28. SERTRALINE [Concomitant]
     Active Substance: SERTRALINE HYDROCHLORIDE
  29. SOLU-MEDROL [Concomitant]
     Active Substance: METHYLPREDNISOLONE SODIUM SUCCINATE
     Indication: Premedication
     Dosage: 100.0 MILLIGRAM
     Route: 042
  30. SYNTHROID [Concomitant]
     Active Substance: LEVOTHYROXINE SODIUM
  31. TYLENOL [Concomitant]
     Active Substance: ACETAMINOPHEN
     Indication: Premedication
     Dosage: 650.0 MILLIGRAM
     Route: 048
  32. WARFARIN [Concomitant]
     Active Substance: WARFARIN

REACTIONS (5)
  - Oxygen saturation decreased [Not Recovered/Not Resolved]
  - Respiratory failure [Not Recovered/Not Resolved]
  - Off label use [Not Recovered/Not Resolved]
  - Product use in unapproved indication [Not Recovered/Not Resolved]
  - Off label use [Unknown]
